FAERS Safety Report 22161292 (Version 1)
Quarter: 2023Q1

REPORT INFORMATION
  Report Type: Spontaneous
  Country: US (occurrence: US)
  Receive Date: 20230331
  Receipt Date: 20230331
  Transmission Date: 20230417
  Serious: No
  Sender: FDA-Public Use
  Company Number: US-SA-SAC20230330000164

PATIENT
  Sex: Female

DRUGS (2)
  1. DUPIXENT [Suspect]
     Active Substance: DUPILUMAB
     Dosage: UNK
     Route: 065
  2. ADBRY [Suspect]
     Active Substance: TRALOKINUMAB-LDRM
     Dosage: UNK

REACTIONS (11)
  - Alopecia [Unknown]
  - Dry skin [Unknown]
  - Skin exfoliation [Unknown]
  - Conjunctivitis [Unknown]
  - Eye discharge [Unknown]
  - Eyelid margin crusting [Unknown]
  - Lacrimation increased [Unknown]
  - Eye pain [Unknown]
  - Vision blurred [Unknown]
  - Eye irritation [Unknown]
  - Eye pruritus [Unknown]
